FAERS Safety Report 4823784-7 (Version None)
Quarter: 2005Q4

REPORT INFORMATION
  Report Type: 
  Country: None (occurrence: None)
  Receive Date: 20051109
  Receipt Date: 20050310
  Transmission Date: 20060501
  Serious: Yes (Hospitalization, Disabling)
  Sender: FDA-Public Use
  Company Number: US-MERCK-0503USA01922

PATIENT
  Age: 59 Year
  Sex: Male
  Weight: 109 kg

DRUGS (9)
  1. VIOXX [Suspect]
     Indication: ARTHRITIS
     Route: 048
     Dates: start: 20001108, end: 20010720
  2. VIOXX [Suspect]
     Route: 048
     Dates: end: 20030416
  3. EQUATE [Concomitant]
     Indication: PAIN
     Route: 065
     Dates: start: 19850101
  4. CARDIZEM [Concomitant]
     Indication: CARDIAC DISORDER
     Route: 065
     Dates: start: 19940101
  5. COUMADIN [Concomitant]
     Indication: ATRIAL FIBRILLATION
     Route: 065
     Dates: start: 19900101
  6. TYLENOL (CAPLET) [Concomitant]
     Indication: PAIN
     Route: 065
  7. XANAX [Concomitant]
     Indication: ANXIETY
     Route: 065
     Dates: start: 20020101
  8. FUROSEMIDE [Concomitant]
     Indication: BLOOD PRESSURE
     Route: 048
  9. COREG [Concomitant]
     Route: 065
     Dates: start: 20000101, end: 20040101

REACTIONS (16)
  - ABDOMINAL DISCOMFORT [None]
  - ABDOMINAL PAIN UPPER [None]
  - ANXIETY [None]
  - BLOOD PRESSURE INADEQUATELY CONTROLLED [None]
  - CAROTID ARTERY STENOSIS [None]
  - CEREBROVASCULAR ACCIDENT [None]
  - CONSTIPATION [None]
  - DILATATION ATRIAL [None]
  - DYSPNOEA [None]
  - DYSPNOEA EXERTIONAL [None]
  - EJECTION FRACTION DECREASED [None]
  - EMOTIONAL DISTRESS [None]
  - MITRAL VALVE CALCIFICATION [None]
  - MITRAL VALVE INCOMPETENCE [None]
  - OEDEMA PERIPHERAL [None]
  - VENTRICULAR HYPERTROPHY [None]
